FAERS Safety Report 7961089-6 (Version None)
Quarter: 2011Q4

REPORT INFORMATION
  Report Type: 
  Country: None (occurrence: None)
  Receive Date: 20111207
  Receipt Date: 20111128
  Transmission Date: 20120403
  Serious: No
  Sender: FDA-Public Use
  Company Number: US-JNJFOC-20111112169

PATIENT
  Age: 31 Year
  Sex: Male

DRUGS (3)
  1. LEXAPRO [Concomitant]
     Route: 048
  2. TRAZODONE HCL [Concomitant]
     Route: 048
  3. INVEGA SUSTENNA [Suspect]
     Indication: PRODUCT USED FOR UNKNOWN INDICATION
     Route: 030
     Dates: end: 20111101

REACTIONS (2)
  - PARANOIA [None]
  - EXTRAPYRAMIDAL DISORDER [None]
